FAERS Safety Report 6167792-5 (Version None)
Quarter: 2009Q2

REPORT INFORMATION
  Report Type: 
  Country: None (occurrence: None)
  Receive Date: 20090427
  Receipt Date: 20090421
  Transmission Date: 20091009
  Serious: Yes (Other)
  Sender: FDA-Public Use
  Company Number: JP-JNJFOC-20080401477

PATIENT
  Sex: Female

DRUGS (12)
  1. HALOMONTH [Suspect]
     Route: 030
  2. HALOMONTH [Suspect]
     Route: 030
  3. HALOMONTH [Suspect]
     Route: 030
  4. HALOMONTH [Suspect]
     Route: 030
  5. HALOMONTH [Suspect]
     Route: 030
  6. HALOMONTH [Suspect]
     Route: 030
  7. HALOMONTH [Suspect]
     Route: 030
  8. HALOMONTH [Suspect]
     Route: 030
  9. HALOMONTH [Suspect]
     Indication: SCHIZOPHRENIA
     Route: 030
  10. RISPERDAL [Concomitant]
     Route: 048
  11. RISPERDAL [Concomitant]
     Indication: SCHIZOPHRENIA
     Route: 048
  12. CARBAMAZEPINE [Concomitant]
     Indication: ENZYME INDUCTION
     Route: 048
     Dates: start: 20080412, end: 20080506

REACTIONS (5)
  - AUTONOMIC NERVOUS SYSTEM IMBALANCE [None]
  - DRUG LEVEL INCREASED [None]
  - NEUROLEPTIC MALIGNANT SYNDROME [None]
  - PYREXIA [None]
  - TACHYCARDIA [None]
